FAERS Safety Report 21015119 (Version 2)
Quarter: 2022Q3

REPORT INFORMATION
  Report Type: Spontaneous
  Country: CA (occurrence: CA)
  Receive Date: 20220628
  Receipt Date: 20220720
  Transmission Date: 20221027
  Serious: Yes (Other)
  Sender: FDA-Public Use
  Company Number: CA-JNJFOC-20201016062

PATIENT
  Age: 46 Year
  Sex: Male

DRUGS (31)
  1. INFLIXIMAB [Suspect]
     Active Substance: INFLIXIMAB
     Indication: Crohn^s disease
     Route: 041
  2. INFLIXIMAB [Suspect]
     Active Substance: INFLIXIMAB
     Route: 041
  3. ATENOLOL [Suspect]
     Active Substance: ATENOLOL
     Indication: Product used for unknown indication
     Route: 048
  4. ATENOLOL [Suspect]
     Active Substance: ATENOLOL
     Route: 065
  5. AZATHIOPRINE [Suspect]
     Active Substance: AZATHIOPRINE
     Indication: Product used for unknown indication
     Route: 065
  6. AZATHIOPRINE [Suspect]
     Active Substance: AZATHIOPRINE
     Route: 065
  7. AZATHIOPRINE [Suspect]
     Active Substance: AZATHIOPRINE
     Route: 065
  8. CALCIUM GLUCONATE [Suspect]
     Active Substance: CALCIUM GLUCONATE
     Indication: Product used for unknown indication
     Route: 065
  9. CALCIUM GLUCONATE [Suspect]
     Active Substance: CALCIUM GLUCONATE
     Route: 065
  10. CLOZARIL [Suspect]
     Active Substance: CLOZAPINE
     Indication: Product used for unknown indication
     Route: 065
  11. CORTISONE [Suspect]
     Active Substance: CORTISONE
     Indication: Product used for unknown indication
     Route: 065
  12. INFLIXIMAB [Suspect]
     Active Substance: INFLIXIMAB
     Indication: Crohn^s disease
     Route: 042
  13. INFLIXIMAB [Suspect]
     Active Substance: INFLIXIMAB
     Route: 042
  14. METHOTREXATE [Suspect]
     Active Substance: METHOTREXATE
     Indication: Product used for unknown indication
     Dosage: THERAPY DURATION: 365.0
     Route: 065
     Dates: start: 2014, end: 2015
  15. METHOTREXATE [Suspect]
     Active Substance: METHOTREXATE
     Route: 065
  16. PANTOPRAZOLE [Suspect]
     Active Substance: PANTOPRAZOLE
     Indication: Product used for unknown indication
     Route: 065
  17. PREDNISONE [Suspect]
     Active Substance: PREDNISONE
     Indication: Product used for unknown indication
     Route: 065
     Dates: start: 2018
  18. VITAMIN B12 [Suspect]
     Active Substance: CYANOCOBALAMIN
     Indication: Product used for unknown indication
     Route: 065
  19. XARELTO [Suspect]
     Active Substance: RIVAROXABAN
     Indication: Product used for unknown indication
     Route: 065
  20. HUMIRA [Suspect]
     Active Substance: ADALIMUMAB
     Indication: Product used for unknown indication
     Route: 058
  21. INFLECTRA [Suspect]
     Active Substance: INFLIXIMAB-DYYB
     Indication: Crohn^s disease
     Dosage: 2, 6 WEEKS, THEN EVERY 8 WEEKS
     Route: 042
     Dates: start: 20190130
  22. INFLECTRA [Suspect]
     Active Substance: INFLIXIMAB-DYYB
     Dosage: 2, 6 WEEKS, THEN EVERY 8 WEEKS
     Route: 042
     Dates: start: 20191113
  23. CYANOCOBALAMIN [Suspect]
     Active Substance: CYANOCOBALAMIN
     Indication: Product used for unknown indication
     Route: 065
  24. METHOTREXATE SODIUM [Suspect]
     Active Substance: METHOTREXATE SODIUM
     Indication: Product used for unknown indication
  25. METHOTREXATE SODIUM [Suspect]
     Active Substance: METHOTREXATE SODIUM
     Route: 065
  26. DESOXIMETASONE [Suspect]
     Active Substance: DESOXIMETASONE
     Indication: Product used for unknown indication
     Route: 065
  27. PANTOPRAZOLE SODIUM [Suspect]
     Active Substance: PANTOPRAZOLE SODIUM
     Indication: Product used for unknown indication
     Route: 065
  28. CALCIUM CHLORIDE [Suspect]
     Active Substance: CALCIUM CHLORIDE
     Indication: Product used for unknown indication
     Route: 065
  29. CLOZAPINE [Suspect]
     Active Substance: CLOZAPINE
     Indication: Product used for unknown indication
     Route: 065
  30. CALCIUM CHLORIDE [Concomitant]
     Active Substance: CALCIUM CHLORIDE
     Indication: Product used for unknown indication
  31. CALCIUM GLUCONATE [Concomitant]
     Active Substance: CALCIUM GLUCONATE

REACTIONS (4)
  - Drug-induced liver injury [Unknown]
  - Drug-induced liver injury [Unknown]
  - Hepatitis [Unknown]
  - Drug ineffective [Unknown]

NARRATIVE: CASE EVENT DATE: 20140101
